FAERS Safety Report 7769615-7 (Version None)
Quarter: 2011Q3

REPORT INFORMATION
  Report Type: 
  Country: None (occurrence: None)
  Receive Date: 20110922
  Receipt Date: 20110513
  Transmission Date: 20111222
  Serious: No
  Sender: FDA-Public Use
  Company Number: US-ASTRAZENECA-2010SE40936

PATIENT
  Age: 52 Year
  Sex: Female
  Weight: 49.9 kg

DRUGS (13)
  1. SEROQUEL [Suspect]
     Indication: MAJOR DEPRESSION
     Route: 048
     Dates: start: 20090301
  2. CLONEZAPAM [Concomitant]
     Indication: ANXIETY
  3. HRT [Concomitant]
     Indication: HYSTERECTOMY
  4. SEROQUEL [Suspect]
     Route: 048
     Dates: start: 20100830
  5. SEROQUEL [Suspect]
     Route: 048
  6. LAMICTAL [Concomitant]
  7. SEROQUEL [Suspect]
     Indication: BIPOLAR DISORDER
     Route: 048
     Dates: start: 20090301
  8. SEROQUEL [Suspect]
     Route: 048
     Dates: start: 20100830
  9. SEROQUEL [Suspect]
     Route: 048
  10. SEROQUEL [Suspect]
     Indication: SLEEP DISORDER
     Route: 048
     Dates: start: 20090301
  11. SEROQUEL [Suspect]
     Route: 048
  12. SEROQUEL [Suspect]
     Route: 048
     Dates: start: 20100830
  13. WELLBUTRIN XL [Concomitant]

REACTIONS (9)
  - NASOPHARYNGITIS [None]
  - WRONG TECHNIQUE IN DRUG USAGE PROCESS [None]
  - OFF LABEL USE [None]
  - DEPRESSION [None]
  - FATIGUE [None]
  - ABNORMAL DREAMS [None]
  - DRUG DOSE OMISSION [None]
  - MIDDLE INSOMNIA [None]
  - MALAISE [None]
